FAERS Safety Report 10019667 (Version 2)
Quarter: 2014Q1

REPORT INFORMATION
  Report Type: Report from Study
  Country: CA (occurrence: CA)
  Receive Date: 20140318
  Receipt Date: 20140318
  Transmission Date: 20141002
  Serious: No
  Sender: FDA-Public Use
  Company Number: CA-ABBVIE-14P-028-1185347-00

PATIENT
  Sex: Female
  Weight: 47.67 kg

DRUGS (20)
  1. HUMIRA [Suspect]
     Indication: CROHN^S DISEASE
     Route: 058
     Dates: start: 20111104, end: 20130802
  2. HUMIRA [Suspect]
     Route: 058
     Dates: end: 20140824
  3. METHOTREXATE [Suspect]
     Indication: PRODUCT USED FOR UNKNOWN INDICATION
  4. IRON [Concomitant]
     Indication: MINERAL SUPPLEMENTATION
  5. CALCIUM [Concomitant]
     Indication: MINERAL SUPPLEMENTATION
  6. METHOTREXATE [Concomitant]
     Indication: CROHN^S DISEASE
     Route: 048
  7. METHOTREXATE [Concomitant]
     Route: 048
  8. OXYCODONE [Concomitant]
     Indication: PAIN MANAGEMENT
     Route: 048
  9. CORTISONE [Concomitant]
     Indication: PRODUCT USED FOR UNKNOWN INDICATION
     Dosage: FEW TIMES
  10. INDOMETACINE [Concomitant]
     Indication: GASTROINTESTINAL DISORDER
  11. INDOMETACINE [Concomitant]
  12. FERROUS SULFATE [Concomitant]
     Indication: PRODUCT USED FOR UNKNOWN INDICATION
  13. CALCIUM AND VITAMIN D [Concomitant]
     Indication: PRODUCT USED FOR UNKNOWN INDICATION
  14. TECTA [Concomitant]
     Indication: PRODUCT USED FOR UNKNOWN INDICATION
  15. ALDERONATE [Concomitant]
     Indication: PRODUCT USED FOR UNKNOWN INDICATION
  16. REACTINE [Concomitant]
     Indication: PRODUCT USED FOR UNKNOWN INDICATION
  17. OXAZEPAM [Concomitant]
     Indication: PRODUCT USED FOR UNKNOWN INDICATION
  18. FOLIC ACID [Concomitant]
     Indication: PRODUCT USED FOR UNKNOWN INDICATION
     Dosage: 6 TABS TAKEN WHEN METHOTREXATE + HUMIRA WAS NOT TAKEN
  19. ZOPICLONE [Concomitant]
     Indication: PRODUCT USED FOR UNKNOWN INDICATION
  20. TRIAZIDE [Concomitant]
     Indication: PRODUCT USED FOR UNKNOWN INDICATION
     Dosage: 50/25 1/2 TAB

REACTIONS (16)
  - Arthralgia [Recovered/Resolved]
  - Cough [Unknown]
  - Sputum discoloured [Unknown]
  - Dyspnoea [Unknown]
  - Hypertension [Unknown]
  - Blood pressure fluctuation [Unknown]
  - Colitis [Unknown]
  - Arthralgia [Unknown]
  - Procedural pain [Unknown]
  - Local swelling [Unknown]
  - Feeling hot [Unknown]
  - Procedural pain [Not Recovered/Not Resolved]
  - Diarrhoea [Unknown]
  - Condition aggravated [Unknown]
  - Gastrointestinal disorder [Unknown]
  - Drug ineffective [Unknown]
